FAERS Safety Report 15524674 (Version 2)
Quarter: 2018Q4

REPORT INFORMATION
  Report Type: Spontaneous
  Country: US (occurrence: US)
  Receive Date: 20181018
  Receipt Date: 20181115
  Transmission Date: 20190205
  Serious: No
  Sender: FDA-Public Use
  Company Number: US-PFIZER INC-2018421048

PATIENT
  Age: 31 Year
  Sex: Female
  Weight: 147.42 kg

DRUGS (12)
  1. DULOXETINE. [Concomitant]
     Active Substance: DULOXETINE
     Indication: DEPRESSION
     Dosage: 60 MG, 1X/DAY [60 MILLIGRAM CAPSULE AND 30 MILLIGRAM CAPSULE ONCE PER DAY BY MOUTH IN THE MORNING]
     Route: 048
  2. MELOXICAM. [Concomitant]
     Active Substance: MELOXICAM
     Indication: SWELLING
     Dosage: 15 MG, 1X/DAY
     Route: 048
     Dates: start: 2015
  3. DOXEPIN HCL [Concomitant]
     Active Substance: DOXEPIN HYDROCHLORIDE
     Dosage: 10 MG, 1X/DAY [25 MILLIGRAM CAPSULE AND 10 MILLIGRAM CAPSULE ONCE PER DAY BY MOUTH AT BEDTIME]
     Route: 048
  4. TRAMADOL HCL [Concomitant]
     Active Substance: TRAMADOL HYDROCHLORIDE
     Indication: PAIN
     Dosage: 50 MG, 3X/DAY
     Route: 048
     Dates: start: 2016
  5. ZANAFLEX [Concomitant]
     Active Substance: TIZANIDINE HYDROCHLORIDE
     Indication: MUSCLE RELAXANT THERAPY
     Dosage: 8 MG, 3X/DAY (TWO 4 MG; TAKES 6 TABLETES PER DAY)
     Dates: start: 2015
  6. LYRICA [Suspect]
     Active Substance: PREGABALIN
     Indication: NEUROPATHY PERIPHERAL
     Dosage: 75 MG, 2X/DAY
     Route: 048
  7. LYRICA [Suspect]
     Active Substance: PREGABALIN
     Indication: FIBROMYALGIA
  8. ZANAFLEX [Concomitant]
     Active Substance: TIZANIDINE HYDROCHLORIDE
     Indication: MUSCLE SPASMS
  9. PROAIR HFA [Concomitant]
     Active Substance: ALBUTEROL SULFATE
     Indication: BRONCHITIS
     Dosage: 2 DF, AS NEEDED [TWO PUFFS EVERY 4-6 HOURS AS NEEDED]
     Route: 055
     Dates: start: 2001
  10. DULOXETINE. [Concomitant]
     Active Substance: DULOXETINE
     Dosage: 30 MG, 1X/DAY [60 MILLIGRAM CAPSULE AND 30 MILLIGRAM CAPSULE ONCE PER DAY BY MOUTH IN THE MORNING]
     Route: 048
  11. ARIPIPRAZOLE. [Concomitant]
     Active Substance: ARIPIPRAZOLE
     Indication: DEPRESSION
     Dosage: 2 MG, 1X/DAY
     Route: 048
     Dates: start: 201810
  12. DOXEPIN HCL [Concomitant]
     Active Substance: DOXEPIN HYDROCHLORIDE
     Indication: SLEEP DISORDER
     Dosage: 25 MG, 1X/DAY [25 MILLIGRAM CAPSULE AND 10 MILLIGRAM CAPSULE ONCE PER DAY BY MOUTH AT BEDTIME]
     Route: 048

REACTIONS (1)
  - Drug ineffective [Unknown]
